FAERS Safety Report 11008233 (Version 4)
Quarter: 2015Q3

REPORT INFORMATION
  Report Type: Report from Study
  Country: US (occurrence: US)
  Receive Date: 20150410
  Receipt Date: 20150923
  Transmission Date: 20151125
  Serious: Yes (Hospitalization, Other)
  Sender: FDA-Public Use
  Company Number: US-BAYER-2015-025577

PATIENT
  Age: 58 Year
  Sex: Male
  Weight: 98.87 kg

DRUGS (8)
  1. ADCIRCA [Concomitant]
     Active Substance: TADALAFIL
  2. ADEMPAS [Suspect]
     Active Substance: RIOCIGUAT
     Indication: PULMONARY ARTERIAL HYPERTENSION
     Dosage: 2.5 MG, TID
     Route: 048
  3. ADEMPAS [Suspect]
     Active Substance: RIOCIGUAT
     Indication: PULMONARY ARTERIAL HYPERTENSION
     Dosage: 2.5 MG, TID
     Route: 048
  4. ADEMPAS [Suspect]
     Active Substance: RIOCIGUAT
     Indication: PULMONARY ARTERIAL HYPERTENSION
     Dosage: 1MG BID, 1.5MG QD (ON FRIDAYS)
     Route: 048
     Dates: start: 20140305
  5. ADEMPAS [Suspect]
     Active Substance: RIOCIGUAT
     Indication: PULMONARY ARTERIAL HYPERTENSION
     Dosage: 2.5 MG, TID
     Route: 048
  6. ADEMPAS [Suspect]
     Active Substance: RIOCIGUAT
     Indication: PULMONARY ARTERIAL HYPERTENSION
     Dosage: 1.5 MG, QD
     Route: 048
  7. COUMADIN [Suspect]
     Active Substance: WARFARIN SODIUM
  8. ADEMPAS [Suspect]
     Active Substance: RIOCIGUAT
     Indication: PULMONARY ARTERIAL HYPERTENSION
     Dosage: 1.5 MG, TID
     Route: 048
     Dates: start: 20150205

REACTIONS (21)
  - Hypersensitivity [Unknown]
  - Upper respiratory tract infection [Unknown]
  - Hypotension [Unknown]
  - Feeling abnormal [None]
  - Inappropriate schedule of drug administration [None]
  - Dyspepsia [None]
  - Diarrhoea [None]
  - Lethargy [None]
  - Weight decreased [Unknown]
  - Haemoptysis [Recovered/Resolved]
  - Blood pressure diastolic decreased [Recovered/Resolved]
  - Dizziness [None]
  - Extra dose administered [Unknown]
  - Blood pressure systolic decreased [None]
  - International normalised ratio increased [None]
  - Dizziness exertional [None]
  - Fatigue [None]
  - Cough [None]
  - Epistaxis [Recovered/Resolved]
  - Drug effect incomplete [None]
  - Dizziness [Unknown]

NARRATIVE: CASE EVENT DATE: 201502
